FAERS Safety Report 17938898 (Version 1)
Quarter: 2020Q2

REPORT INFORMATION
  Report Type: Report from Study
  Country: IE (occurrence: IE)
  Receive Date: 20200624
  Receipt Date: 20200624
  Transmission Date: 20200714
  Serious: Yes (Other)
  Sender: FDA-Public Use
  Company Number: NVSC2020IE177428

PATIENT
  Age: 51 Year
  Sex: Male

DRUGS (1)
  1. COSENTYX [Suspect]
     Active Substance: SECUKINUMAB
     Indication: ANKYLOSING SPONDYLITIS
     Dosage: 300 MG, UNKNOWN
     Route: 058
     Dates: start: 20200427

REACTIONS (4)
  - Oropharyngeal pain [Recovering/Resolving]
  - Erectile dysfunction [Not Recovered/Not Resolved]
  - Sinusitis [Not Recovered/Not Resolved]
  - Fatigue [Not Recovered/Not Resolved]

NARRATIVE: CASE EVENT DATE: 202005
